FAERS Safety Report 5692635-3 (Version None)
Quarter: 2008Q2

REPORT INFORMATION
  Report Type: 
  Country: None (occurrence: None)
  Receive Date: 20080401
  Receipt Date: 20080318
  Transmission Date: 20081010
  Serious: Yes (Hospitalization, Other)
  Sender: FDA-Public Use
  Company Number: 2007US000860

PATIENT
  Age: 59 Year
  Sex: Male

DRUGS (19)
  1. PROGRAF [Suspect]
     Indication: LIVER TRANSPLANT REJECTION
     Dosage: 2 MG, BID; 3 MG, BID
     Dates: start: 20060415, end: 20060420
  2. PROGRAF [Suspect]
     Indication: LIVER TRANSPLANT REJECTION
     Dosage: 2 MG, BID; 3 MG, BID
     Dates: start: 20060421, end: 20060609
  3. PROGRAF [Suspect]
     Indication: LIVER TRANSPLANT REJECTION
     Dosage: 2 MG, BID; 3 MG, BID
     Dates: start: 20061030
  4. MYCOPHENOLATE MOFETIL [Suspect]
     Indication: LIVER TRANSPLANT REJECTION
     Dosage: 1 G, UID/QD; 1 G, BID, ORAL; 1 G, UID/QD, ORAL
     Route: 048
     Dates: start: 20060112, end: 20060113
  5. MYCOPHENOLATE MOFETIL [Suspect]
     Indication: LIVER TRANSPLANT REJECTION
     Dosage: 1 G, UID/QD; 1 G, BID, ORAL; 1 G, UID/QD, ORAL
     Route: 048
     Dates: start: 20060414, end: 20061030
  6. SIROLIMUS(SIROLIMUS) [Suspect]
     Indication: LIVER TRANSPLANT REJECTION
     Dosage: 2 MG, UID/QD, ORAL; 4 MG, UID/QD; 2 MG, ORAL
     Route: 048
     Dates: start: 20060610, end: 20060615
  7. SIROLIMUS(SIROLIMUS) [Suspect]
     Indication: LIVER TRANSPLANT REJECTION
     Dosage: 2 MG, UID/QD, ORAL; 4 MG, UID/QD; 2 MG, ORAL
     Route: 048
     Dates: start: 20060616, end: 20071030
  8. ANTIBIOTICS () [Suspect]
     Indication: LIVER ABSCESS
  9. ACYCLOVIR [Concomitant]
  10. BACTRIM DS [Concomitant]
  11. NEXIUM [Concomitant]
  12. AMARYL [Concomitant]
  13. BENADRYL [Concomitant]
  14. VANCOMYCIN HYDROCHLORIDE [Concomitant]
  15. ZOSYN [Concomitant]
  16. CELEXA [Concomitant]
  17. LACTOBACILLUS ACIDOPHILUS (LACTOBACILLUS ACIDOPHILUS) [Concomitant]
  18. GLIPIZIDE [Concomitant]
  19. ACTIGALL [Concomitant]

REACTIONS (16)
  - ANASTOMOTIC STENOSIS [None]
  - BILIARY TRACT DISORDER [None]
  - CHOLANGITIS [None]
  - CLOSTRIDIUM DIFFICILE COLITIS [None]
  - HEPATIC ARTERY OCCLUSION [None]
  - HEPATIC ARTERY THROMBOSIS [None]
  - HEPATIC ENZYME INCREASED [None]
  - HEPATIC INFECTION [None]
  - HEPATIC NEOPLASM MALIGNANT [None]
  - LIVER ABSCESS [None]
  - LIVER DISORDER [None]
  - MUSCULAR WEAKNESS [None]
  - NECROSIS [None]
  - NEURALGIC AMYOTROPHY [None]
  - PERIPHERAL MOTOR NEUROPATHY [None]
  - POLYNEUROPATHY [None]
